FAERS Safety Report 25013596 (Version 1)
Quarter: 2025Q1

REPORT INFORMATION
  Report Type: Spontaneous
  Country: CN (occurrence: CN)
  Receive Date: 20250226
  Receipt Date: 20250226
  Transmission Date: 20250408
  Serious: Yes (Life-Threatening, Disabling, Other)
  Sender: PFIZER
  Company Number: CN-PFIZER INC-PV202500021807

PATIENT
  Age: 41 Year
  Sex: Female
  Weight: 56 kg

DRUGS (5)
  1. METHOTREXATE SODIUM [Suspect]
     Active Substance: METHOTREXATE SODIUM
     Indication: Ectopic pregnancy
     Dosage: 0.02 G, 1X/DAY
     Dates: start: 20250210, end: 20250210
  2. PIPERACILLIN AND TAZOBACTAM [Suspect]
     Active Substance: PIPERACILLIN SODIUM\TAZOBACTAM SODIUM
     Indication: Anti-infective therapy
     Dosage: 4.5 G, 3X/DAY
     Route: 041
     Dates: start: 20250213, end: 20250215
  3. CEFUROXIME SODIUM [Suspect]
     Active Substance: CEFUROXIME SODIUM
     Indication: Vehicle solution use
     Dosage: 1.5 G, 2X/DAY
     Route: 041
     Dates: start: 20250210, end: 20250212
  4. SODIUM CHLORIDE [Concomitant]
     Active Substance: SODIUM CHLORIDE
     Indication: Vehicle solution use
     Dosage: 100 ML, 2X/DAY
     Route: 041
     Dates: start: 20250209, end: 20250210
  5. SODIUM CHLORIDE [Concomitant]
     Active Substance: SODIUM CHLORIDE
     Dosage: 100 ML, 1X/DAY
     Route: 041
     Dates: start: 20250213, end: 20250215

REACTIONS (18)
  - Multiple organ dysfunction syndrome [Not Recovered/Not Resolved]
  - Liver injury [Not Recovered/Not Resolved]
  - Renal impairment [Not Recovered/Not Resolved]
  - Infection [Not Recovered/Not Resolved]
  - Vomiting [Not Recovered/Not Resolved]
  - Melaena [Not Recovered/Not Resolved]
  - Platelet count decreased [Not Recovered/Not Resolved]
  - Nasal disorder [Not Recovered/Not Resolved]
  - Pyrexia [Not Recovered/Not Resolved]
  - Nausea [Not Recovered/Not Resolved]
  - Abdominal tenderness [Not Recovered/Not Resolved]
  - Vaginal haemorrhage [Not Recovered/Not Resolved]
  - Chest discomfort [Not Recovered/Not Resolved]
  - Tachypnoea [Not Recovered/Not Resolved]
  - Haemoglobin decreased [Not Recovered/Not Resolved]
  - Fibrin D dimer increased [Not Recovered/Not Resolved]
  - Coagulation test abnormal [Not Recovered/Not Resolved]
  - Off label use [Not Recovered/Not Resolved]

NARRATIVE: CASE EVENT DATE: 20250210
